FAERS Safety Report 5613909-8 (Version None)
Quarter: 2008Q1

REPORT INFORMATION
  Report Type: 
  Country: None (occurrence: None)
  Receive Date: 20080205
  Receipt Date: 20080125
  Transmission Date: 20080703
  Serious: Yes (Hospitalization)
  Sender: FDA-Public Use
  Company Number: US-JNJFOC-20071003281

PATIENT
  Sex: Male

DRUGS (26)
  1. DURAGESIC-100 [Suspect]
     Route: 062
  2. DURAGESIC-100 [Suspect]
     Route: 062
  3. DURAGESIC-100 [Suspect]
     Indication: PAIN
     Route: 062
  4. ZOLOFT [Concomitant]
     Route: 065
  5. LIDODERM [Concomitant]
     Route: 065
  6. SKELAXIN [Concomitant]
     Route: 065
  7. RESTORIL [Concomitant]
     Route: 065
  8. NASONEX [Concomitant]
     Route: 065
  9. PHENERGAN HCL [Concomitant]
     Dosage: FOUR TIMES WHEN NECESSARY
     Route: 065
  10. FLEXERIL [Concomitant]
     Route: 065
  11. WELLBUTRIN XL [Concomitant]
     Route: 065
  12. PROVIGIL [Concomitant]
     Route: 065
  13. GABITRIL [Concomitant]
     Route: 065
  14. LEXAPRO [Concomitant]
     Route: 065
  15. ACETAMINOPHEN AND HYDROCODONE BITARTRATE [Concomitant]
     Route: 065
  16. AVINZA [Concomitant]
     Route: 065
  17. ACETAMINOPHEN AND OXYCODONE HCL [Concomitant]
     Route: 065
  18. CIPROFLOXACIN [Concomitant]
     Route: 065
  19. ADVAIR DISKUS 100/50 [Concomitant]
     Route: 065
  20. PREDNISONE TAB [Concomitant]
     Route: 065
  21. ALBUTEROL [Concomitant]
     Route: 065
  22. EFFEXOR XR [Concomitant]
     Route: 065
  23. BUSPIRON [Concomitant]
     Route: 065
  24. BACLOFEN [Concomitant]
     Route: 065
  25. PROTONIX [Concomitant]
     Route: 065
  26. ULTRACET [Concomitant]
     Route: 065

REACTIONS (6)
  - CARDIAC ARREST [None]
  - CARDIAC DISORDER [None]
  - CARDIOMYOPATHY [None]
  - DEVICE LEAKAGE [None]
  - HYPOTENSION [None]
  - LOSS OF CONSCIOUSNESS [None]
